FAERS Safety Report 4710658-5 (Version None)
Quarter: 2005Q3

REPORT INFORMATION
  Report Type: 
  Country: None (occurrence: None)
  Receive Date: 20050711
  Receipt Date: 20050630
  Transmission Date: 20060218
  Serious: Yes (Hospitalization)
  Sender: FDA-Public Use
  Company Number: US-MERCK-0506USA04369

PATIENT
  Age: 70 Year
  Sex: Female

DRUGS (13)
  1. ZOCOR [Suspect]
     Indication: HYPERLIPIDAEMIA
     Route: 048
     Dates: start: 20020101, end: 20041209
  2. ZOCOR [Suspect]
     Route: 048
     Dates: start: 20041210, end: 20050203
  3. ZOCOR [Suspect]
     Route: 048
     Dates: start: 20050204, end: 20050308
  4. ZOCOR [Suspect]
     Indication: CORONARY ARTERY DISEASE
     Route: 048
     Dates: start: 20020101, end: 20041209
  5. ZOCOR [Suspect]
     Route: 048
     Dates: start: 20041210, end: 20050203
  6. ZOCOR [Suspect]
     Route: 048
     Dates: start: 20050204, end: 20050308
  7. DILTIA XT [Suspect]
     Indication: HYPERTENSION
     Route: 048
     Dates: start: 20020110
  8. ATENOLOL [Concomitant]
     Indication: HYPERTENSION
     Route: 048
     Dates: start: 20020122
  9. LISINOPRIL [Concomitant]
     Indication: HYPERTENSION
     Route: 048
     Dates: start: 20020618, end: 20050330
  10. ISOSORBIDE MONONITRATE [Concomitant]
     Indication: HYPERTENSION
     Route: 048
     Dates: start: 20020110
  11. ELAVIL [Concomitant]
     Indication: SLEEP DISORDER
     Route: 048
     Dates: start: 20020515
  12. NITROGLYCERIN [Concomitant]
     Route: 061
  13. ASPIRIN [Concomitant]
     Route: 065

REACTIONS (5)
  - DRUG INTERACTION [None]
  - DYSPNOEA [None]
  - GRANULOMA [None]
  - MYOPATHY [None]
  - RHABDOMYOLYSIS [None]
